FAERS Safety Report 6505890-4 (Version None)
Quarter: 2009Q4

REPORT INFORMATION
  Report Type: 
  Country: None (occurrence: None)
  Receive Date: 20091218
  Receipt Date: 20091208
  Transmission Date: 20100525
  Serious: Yes (Other)
  Sender: FDA-Public Use
  Company Number: JP-PFIZER INC-2009300447

PATIENT
  Age: 7 Year
  Sex: Male

DRUGS (2)
  1. IDAMYCIN [Suspect]
     Indication: ACUTE MYELOID LEUKAEMIA
     Dosage: 10 MG/M2
     Route: 039
     Dates: start: 20090216
  2. CYTARABINE [Concomitant]
     Indication: ACUTE MYELOID LEUKAEMIA
     Dosage: 18 G/M2
     Route: 039
     Dates: start: 20090216

REACTIONS (2)
  - CYTOMEGALOVIRUS CHORIORETINITIS [None]
  - ORAL CANDIDIASIS [None]
